FAERS Safety Report 23975828 (Version 1)
Quarter: 2024Q2

REPORT INFORMATION
  Report Type: Spontaneous
  Country: GB (occurrence: GB)
  Receive Date: 20240614
  Receipt Date: 20240614
  Transmission Date: 20240716
  Serious: Yes (Other)
  Sender: FDA-Public Use
  Company Number: GB-B.Braun Medical Inc.-2158099

PATIENT
  Sex: Female
  Weight: 63 kg

DRUGS (3)
  1. METRONIDAZOLE [Suspect]
     Active Substance: METRONIDAZOLE
     Indication: Tooth infection
  2. CLARITHROMYCIN [Suspect]
     Active Substance: CLARITHROMYCIN
  3. LANSOPRAZOLE [Suspect]
     Active Substance: LANSOPRAZOLE

REACTIONS (2)
  - Migraine [Recovered/Resolved]
  - Maternal exposure during breast feeding [Recovered/Resolved]
